FAERS Safety Report 8493610-6 (Version None)
Quarter: 2012Q3

REPORT INFORMATION
  Report Type: 
  Country: None (occurrence: None)
  Receive Date: 20120706
  Receipt Date: 20120622
  Transmission Date: 20120928
  Serious: Yes (Hospitalization, Other)
  Sender: FDA-Public Use
  Company Number: JP-ASTELLAS-2012US005991

PATIENT
  Sex: Male

DRUGS (18)
  1. DEXAMETHASONE SODIUM PHOSPHATE [Concomitant]
     Dosage: 6.6 MG, UID/QD
     Route: 041
     Dates: start: 20111024, end: 20111024
  2. ERLOTINIB HYDROCHLORIDE [Suspect]
     Indication: PANCREATIC CARCINOMA
     Dosage: 100 MG, UID/QD
     Route: 048
     Dates: start: 20110826, end: 20110914
  3. MAGMITT [Concomitant]
     Indication: PRODUCT USED FOR UNKNOWN INDICATION
     Dosage: 990 MG, UID/QD
     Route: 048
  4. DEXAMETHASONE SODIUM PHOSPHATE [Concomitant]
     Indication: PRODUCT USED FOR UNKNOWN INDICATION
     Dosage: 6.6 MG, UID/QD
     Route: 041
     Dates: start: 20110826, end: 20110826
  5. DEXAMETHASONE SODIUM PHOSPHATE [Concomitant]
     Dosage: 6.6 MG, UID/QD
     Route: 041
     Dates: start: 20110929, end: 20110929
  6. DEXAMETHASONE SODIUM PHOSPHATE [Concomitant]
     Dosage: 6.6 MG, UID/QD
     Route: 041
     Dates: start: 20111107, end: 20111107
  7. GEMCITABINE HYDROCHLORIDE [Suspect]
     Dosage: 1000 MG/M2, 2 WEEKS ADMINISTRATION AND 1 WEEK REST
     Route: 041
     Dates: start: 20111118, end: 20111216
  8. DEXAMETHASONE SODIUM PHOSPHATE [Concomitant]
     Dosage: 6.6 MG, UID/QD
     Route: 041
     Dates: start: 20111031, end: 20111031
  9. GEMCITABINE HYDROCHLORIDE [Suspect]
     Dosage: 1000 MG/M2, WEEKLY
     Route: 041
     Dates: start: 20110929, end: 20111006
  10. ERLOTINIB HYDROCHLORIDE [Suspect]
     Dosage: 50 MG, UID/QD
     Route: 048
     Dates: start: 20111024, end: 20111221
  11. DEXAMETHASONE SODIUM PHOSPHATE [Concomitant]
     Dosage: 6.6 MG, UID/QD
     Route: 041
     Dates: start: 20111125, end: 20111125
  12. MIYA BM [Concomitant]
     Indication: PRODUCT USED FOR UNKNOWN INDICATION
     Dosage: 1000 MG, UID/QD
     Route: 048
     Dates: start: 20110908
  13. MUCOSTA [Concomitant]
     Indication: PRODUCT USED FOR UNKNOWN INDICATION
     Dosage: 300 MG, UID/QD
     Route: 048
     Dates: start: 20111222
  14. DEXAMETHASONE SODIUM PHOSPHATE [Concomitant]
     Dosage: 6.6 MG, UID/QD
     Route: 041
     Dates: start: 20111118, end: 20111118
  15. DEXAMETHASONE SODIUM PHOSPHATE [Concomitant]
     Dosage: 6.6 MG, UID/QD
     Route: 041
     Dates: start: 20110902, end: 20110902
  16. DEXAMETHASONE SODIUM PHOSPHATE [Concomitant]
     Dosage: 6.6 MG, UID/QD
     Route: 041
     Dates: start: 20111006, end: 20111006
  17. GEMCITABINE HYDROCHLORIDE [Suspect]
     Indication: PANCREATIC CARCINOMA
     Dosage: 1000 MG/M2, WEEKLY
     Route: 041
     Dates: start: 20110826, end: 20110902
  18. GEMCITABINE HYDROCHLORIDE [Suspect]
     Dosage: 1000 MG/M2, WEEKLY
     Route: 041
     Dates: start: 20111024, end: 20111107

REACTIONS (17)
  - STOMATITIS [None]
  - NECK PAIN [None]
  - ONYCHOMYCOSIS [None]
  - BLOOD BILIRUBIN INCREASED [None]
  - DIARRHOEA [None]
  - HEPATIC FUNCTION ABNORMAL [None]
  - MUSCULOSKELETAL PAIN [None]
  - PYREXIA [None]
  - AMYLASE INCREASED [None]
  - ABDOMINAL DISCOMFORT [None]
  - C-REACTIVE PROTEIN INCREASED [None]
  - OEDEMA PERIPHERAL [None]
  - BLOOD GLUCOSE INCREASED [None]
  - NEOPLASM MALIGNANT [None]
  - RASH [None]
  - CELLULITIS [None]
  - CONSTIPATION [None]
